FAERS Safety Report 9209191 (Version 1)
Quarter: 2013Q1

REPORT INFORMATION
  Report Type: Spontaneous
  Country: US (occurrence: None)
  Receive Date: 20120820
  Receipt Date: 20120820
  Transmission Date: 20140127
  Serious: No
  Sender: FDA-Public Use
  Company Number: 1000031120

PATIENT
  Age: 46 Year
  Sex: Female

DRUGS (3)
  1. VIIBRYD (VILAZODONE)(10 MILLIGRAM, TABLETS) [Suspect]
     Indication: DEPRESSION
     Route: 048
     Dates: start: 201205, end: 201205
  2. ACIPHEX(RABERPRAZOLE SODIUM)(RABERPRAZO LE SODIUM) [Concomitant]
  3. ALLERGY MEDICATION (NOS) (ALLERGY MEDICATION (NOSE)) (ALLERGERY MEDICATION (NOS)) [Concomitant]

REACTIONS (1)
  - Tinnitus [None]
